FAERS Safety Report 9840555 (Version 1)
Quarter: 2013Q4

REPORT INFORMATION
  Report Type: Spontaneous
  Country: MX (occurrence: None)
  Receive Date: 20131211
  Receipt Date: 20131211
  Transmission Date: 20140711
  Serious: Yes (Other)
  Sender: FDA-Public Use
  Company Number: SPV1-2011-00660

PATIENT
  Age: 15 Year
  Sex: Male

DRUGS (2)
  1. ELAPRASE [Suspect]
     Indication: MUCOPOLYSACCHARIDOSIS II
     Route: 041
     Dates: start: 201011
  2. VALPROIC ACID (VALPROIC ACID) [Concomitant]

REACTIONS (1)
  - Convulsion [None]
